FAERS Safety Report 19404725 (Version 2)
Quarter: 2021Q2

REPORT INFORMATION
  Report Type: Spontaneous
  Country: FR (occurrence: FR)
  Receive Date: 20210611
  Receipt Date: 20210616
  Transmission Date: 20210717
  Serious: Yes (Other)
  Sender: FDA-Public Use
  Company Number: FR-TEVA-2021-FR-1922057

PATIENT
  Age: 48 Year
  Sex: Female

DRUGS (5)
  1. ESTIMA [PROGESTERONE] [Suspect]
     Active Substance: PROGESTERONE
     Indication: PRODUCT USED FOR UNKNOWN INDICATION
     Dosage: ESTIMA 200MG?PROGESTERONE
     Route: 065
  2. CALCIUM [Suspect]
     Active Substance: CALCIUM
     Indication: PRODUCT USED FOR UNKNOWN INDICATION
     Route: 065
  3. ESTREVA [Suspect]
     Active Substance: ESTRADIOL
     Indication: PRODUCT USED FOR UNKNOWN INDICATION
     Dosage: ONCE A DAY, TWO PRESSURES., ESTREVA GEL 0.1%
     Route: 065
     Dates: start: 20210603
  4. ESTREVA [Suspect]
     Active Substance: ESTRADIOL
     Dosage: ONCE A DAY, ONE PRESSURE., ESTREVA GEL 0.1%
     Route: 065
  5. DONORMIL [Suspect]
     Active Substance: DOXYLAMINE
     Indication: PRODUCT USED FOR UNKNOWN INDICATION
     Route: 065

REACTIONS (6)
  - Gait inability [Recovered/Resolved]
  - Aphasia [Recovered/Resolved]
  - Fatigue [Unknown]
  - Eye disorder [Recovered/Resolved]
  - Syncope [Recovered/Resolved]
  - Feeling cold [Unknown]

NARRATIVE: CASE EVENT DATE: 20210603
